FAERS Safety Report 13338588 (Version 3)
Quarter: 2017Q1

REPORT INFORMATION
  Report Type: Spontaneous
  Country: GB (occurrence: GB)
  Receive Date: 20170315
  Receipt Date: 20170331
  Transmission Date: 20170428
  Serious: Yes (Life-Threatening, Hospitalization, Other)
  Sender: FDA-Public Use
  Company Number: GB-PFIZER INC-2017103492

PATIENT

DRUGS (1)
  1. VENLAFAXINE HCL [Suspect]
     Active Substance: VENLAFAXINE HYDROCHLORIDE
     Indication: ANTIDEPRESSANT THERAPY
     Dosage: 150 MG, 1X/DAY
     Route: 064

REACTIONS (10)
  - Movement disorder [Recovered/Resolved]
  - Poor feeding infant [Recovered/Resolved]
  - Withdrawal syndrome [Recovered/Resolved]
  - Encephalopathy [Recovered/Resolved]
  - Myoclonus [Recovered/Resolved]
  - Grimacing [Recovered/Resolved]
  - Premature baby [Unknown]
  - Tachypnoea [Recovered/Resolved]
  - Maternal exposure during pregnancy [Unknown]
  - Hypotonia [Recovered/Resolved]
